FAERS Safety Report 7846698-7 (Version None)
Quarter: 2011Q4

REPORT INFORMATION
  Report Type: 
  Country: None (occurrence: None)
  Receive Date: 20111025
  Receipt Date: 20111017
  Transmission Date: 20120403
  Serious: Yes (Disabling, Other)
  Sender: FDA-Public Use
  Company Number: AU-ASTRAZENECA-2011SE60101

PATIENT
  Age: 70 Year
  Sex: Male
  Weight: 121 kg

DRUGS (22)
  1. TOPROL-XL [Suspect]
     Dosage: 190 MG TWICE A DAY+47.5 AT BED TIME
     Route: 048
  2. AMIODARONE HYDROCHLORIDE [Interacting]
     Route: 065
  3. PRAMIN [Concomitant]
     Indication: NAUSEA
     Dosage: AT 11 AM
  4. LERCANIDIPINE [Concomitant]
  5. MAGMIN [Concomitant]
  6. RESTAVIT [Concomitant]
     Indication: SLEEP DISORDER
     Dosage: UP TO 5 TIMES PER WEEK
  7. AVAPRO [Concomitant]
  8. COLOXYL WITH SENNA [Concomitant]
     Dosage: 1-2 PRN
  9. LIPITOR [Concomitant]
  10. NOVOMIX [Concomitant]
     Dosage: 36 UNITS M AND 46 UNITS N
  11. LEVOTHYROXINE SODIUM [Concomitant]
  12. UREMIDE [Concomitant]
     Dosage: 40 MG 2 M AND 2 AT 11 AM
  13. LANSOPRAZOLE [Concomitant]
  14. PERINDOPRIL ERBUMINE [Concomitant]
  15. WARFARIN SODIUM [Concomitant]
  16. GLICLAZIDE [Concomitant]
  17. PERIACTIN [Concomitant]
     Indication: PRURITUS
     Dosage: PRN
  18. GASTROSTOP [Concomitant]
     Dosage: PRN
  19. SLOW-K [Concomitant]
     Dosage: 2 BD
  20. STRONG PAIN PLUS [Concomitant]
     Dosage: 3 TOMES PER DAY
  21. ALLOSIG [Concomitant]
  22. THIAMINE HCL [Concomitant]
     Dosage: BD

REACTIONS (11)
  - DIZZINESS [None]
  - BLOOD GLUCOSE ABNORMAL [None]
  - OFF LABEL USE [None]
  - NAUSEA [None]
  - DYSPNOEA EXERTIONAL [None]
  - NEPHROLITHIASIS [None]
  - INSOMNIA [None]
  - VERTIGO [None]
  - DRUG INTERACTION [None]
  - CELLULITIS [None]
  - HYPOAESTHESIA [None]
